FAERS Safety Report 24773481 (Version 1)
Quarter: 2024Q4

REPORT INFORMATION
  Report Type: Spontaneous
  Country: CN (occurrence: CN)
  Receive Date: 20241225
  Receipt Date: 20241225
  Transmission Date: 20250115
  Serious: Yes (Hospitalization, Other)
  Sender: GLAXOSMITHKLINE
  Company Number: CN-GSK-CN2024APC159924

PATIENT

DRUGS (9)
  1. SERETIDE [Suspect]
     Active Substance: FLUTICASONE PROPIONATE\SALMETEROL XINAFOATE
     Indication: Asthma
     Dosage: UNK
     Route: 055
     Dates: start: 2009
  2. SERETIDE [Suspect]
     Active Substance: FLUTICASONE PROPIONATE\SALMETEROL XINAFOATE
     Indication: Asthma
     Dosage: 1 DF, BID; 50/250?G 60 DOSES
     Route: 055
     Dates: start: 202401
  3. ALBUTEROL [Suspect]
     Active Substance: ALBUTEROL
     Indication: Asthma
     Dosage: UNK
     Dates: start: 2009
  4. MONTELUKAST [Suspect]
     Active Substance: MONTELUKAST SODIUM
     Indication: Asthma
     Dosage: UNK
     Dates: start: 2009
  5. MONTELUKAST [Suspect]
     Active Substance: MONTELUKAST SODIUM
     Indication: Asthma
  6. LORATADINE [Suspect]
     Active Substance: LORATADINE
     Indication: Asthma
     Dosage: UNK
     Dates: start: 2009
  7. METHYLPREDNISOLONE [Suspect]
     Active Substance: METHYLPREDNISOLONE
     Indication: Asthma
     Dosage: UNK
  8. COMPOUND LIQUORICE [Concomitant]
     Indication: Asthma
     Dosage: UNK
  9. SULFAMETHOXAZOLE [Concomitant]
     Active Substance: SULFAMETHOXAZOLE
     Indication: Asthma
     Dosage: UNK

REACTIONS (6)
  - Asthma [Recovering/Resolving]
  - Otitis media [Unknown]
  - Dyspnoea [Recovering/Resolving]
  - Rash [Unknown]
  - Nasopharyngitis [Unknown]
  - Drug ineffective [Unknown]

NARRATIVE: CASE EVENT DATE: 20240101
